FAERS Safety Report 4351741-6 (Version None)
Quarter: 2004Q2

REPORT INFORMATION
  Report Type: 
  Country: None (occurrence: None)
  Receive Date: 20040429
  Receipt Date: 20040309
  Transmission Date: 20050107
  Serious: No
  Sender: FDA-Public Use
  Company Number: 2004-113810-NL

PATIENT
  Age: 29 Year
  Sex: Female
  Weight: 99.1 kg

DRUGS (15)
  1. NUVARING [Suspect]
     Indication: CONTRACEPTION
     Dosage: DF DAILY VAGINAL
     Route: 067
     Dates: start: 20040308
  2. ACIGEL [Concomitant]
  3. LACTOBACILLUS CREAM [Concomitant]
  4. SPERMICIDE [Concomitant]
  5. CELEXA [Concomitant]
  6. SYNTHROID [Concomitant]
  7. ADVAIR DISKUS 100/50 [Concomitant]
  8. MULTI-VITAMINS [Concomitant]
  9. METAMUCIL-2 [Concomitant]
  10. ALBUTEROL [Concomitant]
  11. ZOMIG [Concomitant]
  12. MAXALT [Concomitant]
  13. ZYRTEC [Concomitant]
  14. RHINOCORT [Concomitant]
  15. LUBRICANTS [Concomitant]

REACTIONS (1)
  - MEDICAL DEVICE COMPLICATION [None]
